FAERS Safety Report 10240885 (Version 2)
Quarter: 2014Q2

REPORT INFORMATION
  Report Type: Report from Study
  Country: US (occurrence: US)
  Receive Date: 20140617
  Receipt Date: 20140617
  Transmission Date: 20141212
  Serious: Yes (Hospitalization)
  Sender: FDA-Public Use
  Company Number: PHEH2014US010136

PATIENT
  Age: 65 Year
  Sex: Male

DRUGS (14)
  1. TASIGNA [Suspect]
     Indication: CHRONIC MYELOID LEUKAEMIA
     Dosage: 300 MG, UNK
     Route: 048
     Dates: end: 20140514
  2. TASIGNA [Suspect]
     Dosage: UNK
     Route: 048
     Dates: start: 20140514
  3. ASPIRIN [Concomitant]
     Dosage: 1 DF, QD
     Route: 048
  4. CARVEDILOL [Concomitant]
     Dosage: 50 MG, BID
     Route: 048
  5. CYMBALTA [Concomitant]
     Dosage: 2 DF, QD
     Route: 048
  6. GABAPENTIN [Concomitant]
     Dosage: 1 DF, AS DIRECTED
     Route: 048
  7. GLIMEPIRIDE [Concomitant]
     Dosage: 1 DF, DAILY
     Route: 048
  8. IMATINIB [Concomitant]
     Dosage: 400 MG, QD
     Route: 048
     Dates: start: 20140602
  9. LANTUS [Concomitant]
     Dosage: 100 U/ML, AS DIRECTED
     Route: 058
  10. LORAZEPAM [Concomitant]
     Dosage: 1 DF, PRN
     Route: 048
  11. METFORMIN [Concomitant]
     Dosage: 1 DF, BID
     Route: 048
  12. NORTRIPTYLINE [Concomitant]
     Dosage: 1 DF, TID
     Route: 048
  13. RAMIPRIL [Concomitant]
     Dosage: 1 DF, DAILY
     Route: 048
  14. HYDROCODONE/ACETAMINOPHEN          /00607101/ [Concomitant]
     Dosage: 1 DF, EVERY 4-6 HRS PRN
     Route: 048

REACTIONS (9)
  - Pancreatitis [Recovered/Resolved]
  - Abdominal pain upper [Recovered/Resolved]
  - Nausea [Recovered/Resolved]
  - Vomiting [Recovered/Resolved]
  - Abdominal distension [Unknown]
  - Abdominal tenderness [Unknown]
  - Malaise [Recovered/Resolved]
  - Haematochezia [Recovered/Resolved]
  - Myalgia [Recovered/Resolved]
